FAERS Safety Report 11593289 (Version 1)
Quarter: 2015Q4

REPORT INFORMATION
  Report Type: Spontaneous
  Country: TW (occurrence: TW)
  Receive Date: 20151005
  Receipt Date: 20151005
  Transmission Date: 20160304
  Serious: Yes (Other)
  Sender: FDA-Public Use
  Company Number: TW-JNJFOC-20150927521

PATIENT

DRUGS (6)
  1. GEMCITABINE [Suspect]
     Active Substance: GEMCITABINE\GEMCITABINE HYDROCHLORIDE
     Indication: HEPATOCELLULAR CARCINOMA
     Dosage: ON DAY 1, 8 AND 15
     Route: 042
  2. DACARBAZINE. [Suspect]
     Active Substance: DACARBAZINE
     Indication: HEPATOCELLULAR CARCINOMA
     Dosage: ON DAY 1 IN A 21 DAY CYCLE.
     Route: 042
  3. CISPLATIN. [Suspect]
     Active Substance: CISPLATIN
     Indication: HEPATOCELLULAR CARCINOMA
     Dosage: DAY 1 IN 28 DAY CYCLE
     Route: 042
  4. DOXORUBICIN HYDROCHLORIDE. [Suspect]
     Active Substance: DOXORUBICIN HYDROCHLORIDE
     Indication: HEPATOCELLULAR CARCINOMA
     Dosage: DAY 1 IN A 21 DAY CYCLE.
     Route: 042
  5. HYDRALAZINE [Suspect]
     Active Substance: HYDRALAZINE HYDROCHLORIDE
     Indication: HEPATOCELLULAR CARCINOMA
     Route: 065
  6. VALPROIC ACID. [Suspect]
     Active Substance: VALPROIC ACID
     Indication: HEPATOCELLULAR CARCINOMA
     Route: 048

REACTIONS (5)
  - Hepatic function abnormal [Unknown]
  - Neutropenia [Unknown]
  - Off label use [Unknown]
  - Thrombocytopenia [Unknown]
  - Fatigue [Unknown]
